FAERS Safety Report 6305433-4 (Version None)
Quarter: 2009Q3

REPORT INFORMATION
  Report Type: 
  Country: None (occurrence: None)
  Receive Date: 20090807
  Receipt Date: 20090726
  Transmission Date: 20100115
  Serious: Yes (Death, Hospitalization)
  Sender: FDA-Public Use
  Company Number: RCZYME691

PATIENT
  Age: 4 Year
  Sex: Male
  Weight: 12 kg

DRUGS (1)
  1. CEREZYME [Suspect]
     Indication: GAUCHER'S DISEASE
     Dosage: 700 U, Q2W, INTRAVENOUS
     Route: 042
     Dates: start: 19990518

REACTIONS (12)
  - BLOOD PH DECREASED [None]
  - BLOOD POTASSIUM INCREASED [None]
  - CARDIAC ARREST [None]
  - CONDITION AGGRAVATED [None]
  - CONVULSION [None]
  - DISSEMINATED INTRAVASCULAR COAGULATION [None]
  - HEART RATE DECREASED [None]
  - INCREASED UPPER AIRWAY SECRETION [None]
  - OXYGEN SATURATION DECREASED [None]
  - PSEUDOMONAS INFECTION [None]
  - RENAL FAILURE [None]
  - RESPIRATORY TRACT INFECTION [None]
